FAERS Safety Report 5703732-8 (Version None)
Quarter: 2008Q2

REPORT INFORMATION
  Report Type: 
  Country: None (occurrence: None)
  Receive Date: 20080413
  Receipt Date: 20080403
  Transmission Date: 20081010
  Serious: Yes (Hospitalization)
  Sender: FDA-Public Use
  Company Number: PHBS2008IN03888

PATIENT
  Age: 65 Year
  Sex: Male

DRUGS (5)
  1. THEOPHYLLINE [Suspect]
     Indication: ASTHMA
     Dosage: 400 MG, UNK
     Route: 048
  2. FORMOTEROL FUMARATE [Suspect]
     Dosage: UNK, BID
  3. TIOTROPIUM [Suspect]
  4. RAMIPRIL [Suspect]
     Indication: HYPERTENSION
  5. NEBIVOLOL HCL [Suspect]
     Indication: HYPERTENSION
     Dosage: 2.5 MG, QD
     Route: 048

REACTIONS (11)
  - BLOOD PRESSURE INCREASED [None]
  - ECHOCARDIOGRAM ABNORMAL [None]
  - ELECTROCARDIOGRAM T WAVE AMPLITUDE DECREASED [None]
  - FORCED EXPIRATORY VOLUME DECREASED [None]
  - HEART RATE INCREASED [None]
  - HEART RATE IRREGULAR [None]
  - KNEE ARTHROPLASTY [None]
  - OXYGEN SATURATION DECREASED [None]
  - PCO2 DECREASED [None]
  - PO2 DECREASED [None]
  - WHEEZING [None]
